FAERS Safety Report 6370055-6 (Version None)
Quarter: 2009Q3

REPORT INFORMATION
  Report Type: 
  Country: None (occurrence: None)
  Receive Date: 20090923
  Receipt Date: 20071016
  Transmission Date: 20100115
  Serious: No
  Sender: FDA-Public Use
  Company Number: US-ASTRAZENECA-2006UW21757

PATIENT
  Age: 48 Year
  Sex: Female
  Weight: 78.9 kg

DRUGS (18)
  1. SEROQUEL [Suspect]
     Indication: BIPOLAR DISORDER
     Dosage: 25 - 600 MG
     Route: 048
     Dates: start: 20040831
  2. SEROQUEL [Suspect]
     Indication: DEPRESSION
     Dosage: 25 - 600 MG
     Route: 048
     Dates: start: 20040831
  3. SEROQUEL [Suspect]
     Route: 048
     Dates: start: 20041001, end: 20061001
  4. SEROQUEL [Suspect]
     Route: 048
     Dates: start: 20041001, end: 20061001
  5. GEODON [Concomitant]
     Dates: start: 20040101
  6. ESTROGEN [Concomitant]
     Route: 048
     Dates: start: 20040604
  7. LEVOTHYROXINE SODIUM [Concomitant]
     Route: 048
     Dates: start: 20040507
  8. PAROXETINE HCL [Concomitant]
     Route: 048
     Dates: start: 20040507
  9. ZIPRASIDONE HCL [Concomitant]
     Indication: BIPOLAR I DISORDER
     Route: 048
     Dates: start: 20040309
  10. MIRTAZAPINE [Concomitant]
     Route: 048
     Dates: start: 20050311
  11. NICOTINE [Concomitant]
     Dates: start: 20050603
  12. RANITIDINE [Concomitant]
     Route: 048
     Dates: start: 20050609
  13. CLONIDINE [Concomitant]
     Route: 048
     Dates: start: 20050718
  14. IBUPROFEN [Concomitant]
     Dates: start: 20050620
  15. CLONAZEPAM [Concomitant]
     Route: 048
     Dates: start: 20070226
  16. OMEPRAZOLE [Concomitant]
     Route: 048
     Dates: start: 20060929
  17. GLUCOPHAGE [Concomitant]
     Dates: start: 20051207
  18. ASPIRIN [Concomitant]
     Route: 048
     Dates: start: 20061001

REACTIONS (6)
  - BLOOD CHOLESTEROL INCREASED [None]
  - BLOOD TRIGLYCERIDES INCREASED [None]
  - DIABETES MELLITUS [None]
  - METABOLIC SYNDROME [None]
  - OBESITY [None]
  - TYPE 2 DIABETES MELLITUS [None]
